FAERS Safety Report 16630721 (Version 1)
Quarter: 2019Q3

REPORT INFORMATION
  Report Type: Spontaneous
  Country: IT (occurrence: IT)
  Receive Date: 20190725
  Receipt Date: 20190725
  Transmission Date: 20191004
  Serious: Yes (Other)
  Sender: FDA-Public Use
  Company Number: IT-ACCORD-147640

PATIENT
  Age: 61 Year
  Sex: Male

DRUGS (10)
  1. MIRTAZAPINE. [Concomitant]
     Active Substance: MIRTAZAPINE
  2. MIRTAZAPINE. [Concomitant]
     Active Substance: MIRTAZAPINE
     Indication: DRUG ABUSE
  3. DEPAKIN [Concomitant]
     Active Substance: VALPROATE SODIUM
  4. QUETIAPINE. [Suspect]
     Active Substance: QUETIAPINE
  5. TAVOR (LORAZEPAM) [Suspect]
     Active Substance: LORAZEPAM
  6. DEPAKIN [Suspect]
     Active Substance: VALPROATE SODIUM
  7. CARDIOASPIRIN [Suspect]
     Active Substance: ASPIRIN
  8. MIRTAZAPINE. [Suspect]
     Active Substance: MIRTAZAPINE
  9. QUETIAPINE/QUETIAPINE FUMARATE [Concomitant]
  10. TAVOR [Concomitant]

REACTIONS (4)
  - Intentional self-injury [Recovering/Resolving]
  - Bradyphrenia [Recovering/Resolving]
  - Drug abuse [Unknown]
  - Speech disorder [Recovering/Resolving]

NARRATIVE: CASE EVENT DATE: 20190611
